FAERS Safety Report 16057799 (Version 2)
Quarter: 2019Q1

REPORT INFORMATION
  Report Type: Report from Study
  Country: CA (occurrence: CA)
  Receive Date: 20190311
  Receipt Date: 20190315
  Transmission Date: 20190418
  Serious: Yes (Death)
  Sender: FDA-Public Use
  Company Number: CA-HLSUS-2019-CA-000257

PATIENT
  Age: 55 Year
  Sex: Male

DRUGS (1)
  1. CLOZARIL [Suspect]
     Active Substance: CLOZAPINE
     Indication: SCHIZOPHRENIA
     Dosage: 225 MG
     Route: 048
     Dates: start: 19961209, end: 20190308

REACTIONS (3)
  - Respiratory failure [Fatal]
  - Renal cell carcinoma [Fatal]
  - Anaemia [Unknown]

NARRATIVE: CASE EVENT DATE: 20180113
